FAERS Safety Report 25845222 (Version 3)
Quarter: 2025Q4

REPORT INFORMATION
  Report Type: Report from Study
  Country: JP (occurrence: JP)
  Receive Date: 20250925
  Receipt Date: 20251022
  Transmission Date: 20260118
  Serious: Yes (Hospitalization)
  Sender: ASTELLAS
  Company Number: JP-ASTELLAS-2025-AER-052337

PATIENT
  Age: 52 Year
  Sex: Female
  Weight: 49 kg

DRUGS (12)
  1. VYLOY [Suspect]
     Active Substance: ZOLBETUXIMAB-CLZB
     Indication: Gastric cancer
     Route: 065
     Dates: start: 20241211, end: 20241211
  2. VYLOY [Suspect]
     Active Substance: ZOLBETUXIMAB-CLZB
     Route: 065
     Dates: start: 20250107
  3. CAPECITABINE [Suspect]
     Active Substance: CAPECITABINE
     Indication: Product used for unknown indication
     Route: 065
     Dates: start: 20241211
  4. OXALIPLATIN [Suspect]
     Active Substance: OXALIPLATIN
     Indication: Product used for unknown indication
     Route: 065
     Dates: start: 20241211
  5. PALONOSETRON [Concomitant]
     Active Substance: PALONOSETRON
     Indication: Prophylaxis of nausea and vomiting
     Route: 065
  6. FOSNETUPITANT [Concomitant]
     Active Substance: FOSNETUPITANT
     Indication: Prophylaxis of nausea and vomiting
     Route: 065
  7. DEXAMETHASONE [Concomitant]
     Active Substance: DEXAMETHASONE
     Indication: Prophylaxis of nausea and vomiting
     Route: 065
  8. CHLORPHENIRAMINE [Concomitant]
     Active Substance: CHLORPHENIRAMINE
     Indication: Prophylaxis of nausea and vomiting
     Route: 065
  9. LORAZEPAM [Concomitant]
     Active Substance: LORAZEPAM
     Indication: Prophylaxis of nausea and vomiting
     Route: 065
  10. OLANZAPINE [Concomitant]
     Active Substance: OLANZAPINE
     Indication: Prophylaxis of nausea and vomiting
     Route: 065
  11. METOCLOPRAMIDE INJECTION 10 MG [Concomitant]
     Indication: Vomiting
     Route: 050
     Dates: start: 20250107, end: 20250107
  12. METOCLOPRAMIDE INJECTION 10 MG [Concomitant]
     Indication: Nausea
     Route: 050
     Dates: start: 20250128, end: 20250128

REACTIONS (5)
  - Diarrhoea [Recovered/Resolved]
  - Malaise [Recovered/Resolved]
  - Decreased appetite [Recovered/Resolved]
  - Vomiting [Recovered/Resolved]
  - Nausea [Recovered/Resolved]

NARRATIVE: CASE EVENT DATE: 20241226
